FAERS Safety Report 5149444-3 (Version None)
Quarter: 2006Q4

REPORT INFORMATION
  Report Type: 
  Country: None (occurrence: None)
  Receive Date: 20061113
  Receipt Date: 20060118
  Transmission Date: 20070319
  Serious: No
  Sender: FDA-Public Use
  Company Number: US-GLAXOSMITHKLINE-A0589884A

PATIENT
  Age: 84 Year
  Sex: Female

DRUGS (4)
  1. COREG [Suspect]
     Dosage: 6.25MG TWICE PER DAY
     Route: 048
  2. COUMADIN [Suspect]
  3. LIPITOR [Suspect]
  4. ZOCOR [Suspect]

REACTIONS (4)
  - ABDOMINAL PAIN UPPER [None]
  - DIZZINESS [None]
  - FEELING HOT [None]
  - HYPERSENSITIVITY [None]
